FAERS Safety Report 26026918 (Version 1)
Quarter: 2025Q4

REPORT INFORMATION
  Report Type: Report from Study
  Country: US (occurrence: US)
  Receive Date: 20251111
  Receipt Date: 20251111
  Transmission Date: 20260118
  Serious: Yes (Death)
  Sender: OTSUKA
  Company Number: US-MMM-Otsuka-2K854QTS

PATIENT
  Sex: Female

DRUGS (3)
  1. BREXPIPRAZOLE [Suspect]
     Active Substance: BREXPIPRAZOLE
     Indication: Agitation
     Dosage: 2 MG
     Route: 065
  2. LEVOTHYROXINE [Concomitant]
     Active Substance: LEVOTHYROXINE
     Indication: Thyroid disorder
     Dosage: UNK (LOW DOSE)
     Route: 065
  3. TRAZODONE [Concomitant]
     Active Substance: TRAZODONE HYDROCHLORIDE
     Indication: Sleep disorder
     Dosage: UNK
     Route: 065

REACTIONS (1)
  - Dementia Alzheimer^s type [Fatal]
